FAERS Safety Report 23579916 (Version 1)
Quarter: 2024Q1

REPORT INFORMATION
  Report Type: Spontaneous
  Country: US (occurrence: None)
  Receive Date: 20240228
  Receipt Date: 20240228
  Transmission Date: 20240410
  Serious: Yes (Life-Threatening)
  Sender: FDA-Public Use
  Company Number: None

PATIENT
  Age: 70 Year
  Sex: Female
  Weight: 103.5 kg

DRUGS (6)
  1. MOUNJARO [Suspect]
     Active Substance: TIRZEPATIDE
     Indication: Type 2 diabetes mellitus
     Dosage: OTHER QUANTITY : 1 SHOT;?OTHER FREQUENCY : ONCE A WEEK;?
     Route: 030
     Dates: start: 20231201, end: 20240228
  2. Vitamin d 50,000 unit 1 per day [Concomitant]
  3. Celebrex 200 1 per day [Concomitant]
  4. Synthyroid 125 m per day [Concomitant]
  5. VITAMIN B [Concomitant]
  6. VITAMIN C [Concomitant]
     Active Substance: ASCORBIC ACID

REACTIONS (2)
  - Atrial fibrillation [None]
  - Immediate post-injection reaction [None]

NARRATIVE: CASE EVENT DATE: 20240226
